FAERS Safety Report 9217328 (Version 2)
Quarter: 2013Q2

REPORT INFORMATION
  Report Type: Spontaneous
  Country: US (occurrence: None)
  Receive Date: 20130404
  Receipt Date: 20130425
  Transmission Date: 20140414
  Serious: Yes (Other)
  Sender: FDA-Public Use
  Company Number: JPI-P-030922

PATIENT
  Age: 49 Year
  Sex: Female

DRUGS (1)
  1. XYREM [Suspect]
     Indication: SLEEP DISORDER
     Dosage: 4.5 GM (2.25 GM, 2 IN 1 D) ORAL
     Route: 048
     Dates: start: 20120314, end: 20120628

REACTIONS (3)
  - Sleep apnoea syndrome [None]
  - Arthralgia [None]
  - Arthralgia [None]
